FAERS Safety Report 8544149-0 (Version None)
Quarter: 2012Q3

REPORT INFORMATION
  Report Type: 
  Country: None (occurrence: None)
  Receive Date: 20120727
  Receipt Date: 20120717
  Transmission Date: 20120928
  Serious: Yes (Hospitalization)
  Sender: FDA-Public Use
  Company Number: US-BAYER-2012-015784

PATIENT
  Age: 33 Year
  Sex: Female
  Weight: 104.31 kg

DRUGS (13)
  1. YASMIN [Suspect]
     Dosage: UNK
     Dates: start: 20090101, end: 20100501
  2. YAZ [Suspect]
     Dosage: UNK
     Dates: start: 20090101, end: 20100501
  3. OGESTREL 0.5/50-21 [Concomitant]
     Dosage: UNK
     Dates: start: 20100101
  4. DILAUDID [Concomitant]
     Route: 040
  5. ZOFRAN [Concomitant]
     Route: 040
  6. YAZ [Suspect]
     Dosage: UNK
     Dates: start: 20030101, end: 20060101
  7. YASMIN [Suspect]
     Dosage: UNK
     Dates: start: 20030101, end: 20060101
  8. DROSPIRENONE AND ETHINYL ESTRADIOL [Suspect]
     Dosage: UNK
     Dates: start: 20090101, end: 20100501
  9. CHLORHEXIDINE GLUCONATE [Concomitant]
     Dosage: ? OUNCE FOR 30 SECONDS TWICE
     Route: 048
  10. HYDROCODONE BITARTRATE + ACETAMINOPHEN [Concomitant]
     Dosage: 5 MG - 500 MG TABLET - TK (TAKE) 1 TO 2 TS ( TABLETS) Q (EVERY) 3 TO 6 H(HOURS) PRN
     Route: 048
  11. DROSPIRENONE AND ETHINYL ESTRADIOL [Suspect]
     Dosage: UNK
     Dates: start: 20030101, end: 20060101
  12. CEFOXITIN [Concomitant]
     Route: 040
  13. VICODIN [Concomitant]
     Indication: PAIN

REACTIONS (5)
  - GALLBLADDER DISORDER [None]
  - INJURY [None]
  - MENTAL DISORDER [None]
  - PAIN [None]
  - CHOLECYSTITIS ACUTE [None]
